FAERS Safety Report 7905539-X (Version None)
Quarter: 2011Q4

REPORT INFORMATION
  Report Type: 
  Country: None (occurrence: None)
  Receive Date: 20111110
  Receipt Date: 20111031
  Transmission Date: 20120403
  Serious: No
  Sender: FDA-Public Use
  Company Number: US-BIOGENIDEC-2011BI041719

PATIENT
  Age: 46 Year
  Sex: Female

DRUGS (3)
  1. TYSABRI [Suspect]
     Indication: MULTIPLE SCLEROSIS
     Route: 042
     Dates: start: 20100329, end: 20110101
  2. TYSABRI [Suspect]
     Route: 042
     Dates: start: 20110801, end: 20110801
  3. WELLBUTRIN [Concomitant]
     Indication: DEPRESSION
     Dates: start: 19960101

REACTIONS (1)
  - UNDERDOSE [None]
